FAERS Safety Report 11524208 (Version 1)
Quarter: 2015Q3

REPORT INFORMATION
  Report Type: Spontaneous
  Country: US (occurrence: US)
  Receive Date: 20150903
  Receipt Date: 20150903
  Transmission Date: 20151125
  Serious: No
  Sender: FDA-Public Use
  Company Number: US-ELI_LILLY_AND_COMPANY-US201305004266

PATIENT
  Sex: Female

DRUGS (1)
  1. CYMBALTA [Suspect]
     Active Substance: DULOXETINE HYDROCHLORIDE
     Dosage: UNK (MORE THAN 60 DAYS), UNKNOWN
     Route: 065

REACTIONS (5)
  - Lumbar spinal stenosis [Unknown]
  - Rheumatoid arthritis [Unknown]
  - Back pain [Unknown]
  - Sciatica [Unknown]
  - Scoliosis [Unknown]
